FAERS Safety Report 10744478 (Version 2)
Quarter: 2015Q1

REPORT INFORMATION
  Report Type: Spontaneous
  Country: JP (occurrence: JP)
  Receive Date: 20150128
  Receipt Date: 20150204
  Transmission Date: 20150721
  Serious: Yes (Hospitalization)
  Sender: FDA-Public Use
  Company Number: JP-SA-2015SA007979

PATIENT
  Age: 84 Year
  Sex: Male

DRUGS (2)
  1. PLAVIX [Suspect]
     Active Substance: CLOPIDOGREL BISULFATE
     Indication: MYOCARDIAL INFARCTION
     Route: 048
  2. ASPIRIN. [Suspect]
     Active Substance: ASPIRIN
     Indication: MYOCARDIAL INFARCTION
     Dosage: BAYER ASPIRIN
     Route: 048

REACTIONS (5)
  - Respiration abnormal [Recovered/Resolved]
  - Obstructive airways disorder [Recovered/Resolved]
  - Thrombosis [Recovered/Resolved]
  - Condition aggravated [Recovered/Resolved]
  - Respiratory tract haemorrhage [Recovered/Resolved]
